FAERS Safety Report 4316126-7 (Version None)
Quarter: 2004Q1

REPORT INFORMATION
  Report Type: 
  Country: None (occurrence: None)
  Receive Date: 20040310
  Receipt Date: 20020807
  Transmission Date: 20041129
  Serious: Yes (Hospitalization)
  Sender: FDA-Public Use
  Company Number: 30018705-NA01-1

PATIENT
  Age: 58 Year
  Sex: Male

DRUGS (21)
  1. EXTRANEAL [Suspect]
     Indication: NEPHROSCLEROSIS
     Dosage: 7.5% ICODEXTRIN 2L: QD IP
     Route: 033
     Dates: start: 20010629, end: 20020411
  2. EXTRANEAL [Suspect]
     Indication: RENAL FAILURE CHRONIC
     Dosage: 7.5% ICODEXTRIN 2L: QD IP
     Route: 033
     Dates: start: 20010629, end: 20020411
  3. RAMIPRIL [Concomitant]
  4. ALPHACALCIDOL [Concomitant]
  5. ASPIRIN [Concomitant]
  6. RENAGEL [Concomitant]
  7. AMLODIPINE (AMIODIPINE) [Concomitant]
  8. METOPROLOL (METOPROLOL) [Concomitant]
  9. FERROUS SULPHATE (FERROUS SULFATE) [Concomitant]
  10. THYROXINE [Concomitant]
  11. ALUCAP [Concomitant]
  12. FUROSEMIDE [Concomitant]
  13. SIMVASTATIN (SIMVASTATIN0 [Concomitant]
  14. MINOXIDIL (MINOXIDIL0 [Concomitant]
  15. ERYTHROPROTEIN [Concomitant]
  16. SODIUM BICARBONATE 9SODIUM BICARBONATE) [Concomitant]
  17. SENNA (SENNA) [Concomitant]
  18. SANDO K (POTASSIUM CHLORIDE) [Concomitant]
  19. GLICLAZIDE (GLICLAZIDE) [Concomitant]
  20. LACTULOSE [Concomitant]
  21. MEDIUM (MEPROBAMATE/ERGOTAMINE TARTRATE/BELLADONNA EXTRACT) [Concomitant]

REACTIONS (5)
  - ABDOMINAL PAIN UPPER [None]
  - FEELING ABNORMAL [None]
  - HAEMODIALYSIS [None]
  - PERITONEAL FLUID ANALYSIS ABNORMAL [None]
  - VOMITING [None]
